FAERS Safety Report 8810432 (Version 2)
Quarter: 2012Q4

REPORT INFORMATION
  Report Type: 
  Country: US (occurrence: US)
  Receive Date: 20120927
  Receipt Date: 20121004
  Transmission Date: 20130627
  Serious: Yes (Hospitalization, Other)
  Sender: FDA-Public Use
  Company Number: US-AMGEN-USASP2012060284

PATIENT
  Age: 67 Year
  Sex: Female
  Weight: 55.78 kg

DRUGS (8)
  1. PROLIA [Suspect]
     Indication: OSTEOPOROSIS POSTMENOPAUSAL
     Dosage: UNK UNK, q6mo
     Route: 058
     Dates: start: 20110921
  2. PROLIA [Suspect]
     Dosage: UNK, q6mo
     Route: 058
     Dates: start: 20120316
  3. PROLIA [Suspect]
     Dosage: UNK, q6mo
     Route: 058
     Dates: start: 20120921
  4. OXYCODONE [Concomitant]
     Indication: PAIN
     Dosage: 30 mg, qd
     Route: 048
     Dates: start: 20120814
  5. FUROSEMIDE [Concomitant]
     Indication: OEDEMA
     Dosage: 40 mg, qd
     Route: 048
  6. PRAMIPEXOLE [Concomitant]
     Indication: PARKINSON^S DISEASE
     Dosage: 0.5 mg, qd
     Route: 048
  7. PROZAC [Concomitant]
     Indication: DEPRESSION
     Dosage: 20 mg, qd
     Route: 048
     Dates: start: 20070702
  8. SYNTHROID [Concomitant]
     Indication: HYPOTHYROIDISM
     Dosage: 175 mg, qd
     Route: 048
     Dates: start: 20111205

REACTIONS (4)
  - Colon cancer [Not Recovered/Not Resolved]
  - Discomfort [Unknown]
  - Weight decreased [Unknown]
  - Anaemia [Unknown]
